FAERS Safety Report 4905755-5 (Version None)
Quarter: 2006Q1

REPORT INFORMATION
  Report Type: 
  Country: None (occurrence: None)
  Receive Date: 20060206
  Receipt Date: 20060123
  Transmission Date: 20060701
  Serious: No
  Sender: FDA-Public Use
  Company Number: 221393

PATIENT
  Age: 46 Year
  Sex: Female
  Weight: 48 kg

DRUGS (7)
  1. AVASTIN [Suspect]
     Indication: GLIOBLASTOMA
     Dosage: 180 MG, INTRAVENOUS
     Route: 030
     Dates: start: 20051117
  2. IRINOTECAN HCL [Suspect]
     Indication: GLIOBLASTOMA
     Dosage: 795 MEQ, INTRAVENOUS
     Route: 042
     Dates: start: 20051117
  3. DECADRON [Concomitant]
  4. LOMOTIL (ATROPINE SULFATE, DEOPHENOXYLATE HYDROCHLORIDE) [Concomitant]
  5. ZOFRAN [Concomitant]
  6. AMBIEN [Concomitant]
  7. PEPCID [Concomitant]

REACTIONS (2)
  - DECUBITUS ULCER [None]
  - IMPAIRED HEALING [None]
